FAERS Safety Report 5300189-6 (Version None)
Quarter: 2007Q2

REPORT INFORMATION
  Report Type: 
  Country: None (occurrence: None)
  Receive Date: 20070411
  Receipt Date: 20070330
  Transmission Date: 20071010
  Serious: Yes (Hospitalization)
  Sender: FDA-Public Use
  Company Number: 2007-00909

PATIENT
  Age: 72 Year
  Sex: Male

DRUGS (15)
  1. VELCADE [Suspect]
     Indication: MULTIPLE MYELOMA
     Dates: end: 20070118
  2. VELCADE [Suspect]
     Indication: MULTIPLE MYELOMA
     Dates: start: 20050101
  3. DEXAMETHASONE [Suspect]
     Indication: MULTIPLE MYELOMA
     Dates: end: 20070118
  4. DEXAMETHASONE [Suspect]
     Indication: MULTIPLE MYELOMA
     Dates: start: 20050101
  5. THALIDOMIDE [Suspect]
     Indication: MULTIPLE MYELOMA
     Dates: end: 20070118
  6. THALIDOMIDE [Suspect]
     Indication: MULTIPLE MYELOMA
     Dates: start: 20050101
  7. CISPLATIN [Suspect]
     Indication: MULTIPLE MYELOMA
     Dates: start: 20050101
  8. DOXORUBICIN HCL [Suspect]
     Indication: MULTIPLE MYELOMA
     Dates: start: 20050101
  9. CYCLOPHOSPHAMIDE [Suspect]
     Indication: MULTIPLE MYELOMA
     Dates: start: 20050101
  10. ETOPOSIDE [Suspect]
     Indication: MULTIPLE MYELOMA
     Dates: start: 20050101
  11. MELPHALAN (MELPHALAN) VIAL [Suspect]
     Indication: MULTIPLE MYELOMA
     Dosage: 140.00 MG/M2
     Dates: start: 20050701
  12. MELPHALAN (MELPHALAN) VIAL [Suspect]
     Indication: MULTIPLE MYELOMA
     Dosage: 140.00 MG/M2
     Dates: start: 20050901
  13. ACYCLOVIR [Concomitant]
  14. ZANTAC [Concomitant]
  15. SENNA (SENNA) [Concomitant]

REACTIONS (4)
  - COLON FISTULA REPAIR [None]
  - DRUG TOXICITY [None]
  - ENTEROVESICAL FISTULA [None]
  - PNEUMATURIA [None]
